FAERS Safety Report 17604698 (Version 1)
Quarter: 2020Q1

REPORT INFORMATION
  Report Type: Spontaneous
  Country: US (occurrence: US)
  Receive Date: 20200331
  Receipt Date: 20200331
  Transmission Date: 20200409
  Serious: No
  Sender: FDA-Public Use
  Company Number: US-PFIZER INC-2020131634

PATIENT
  Age: 61 Year
  Sex: Female
  Weight: 73.47 kg

DRUGS (1)
  1. IBRANCE [Suspect]
     Active Substance: PALBOCICLIB
     Indication: BREAST CANCER FEMALE
     Dosage: 75 MG, UNK (1 EVERY OTHER DAY FOR 21 DAYS)
     Route: 048
     Dates: start: 201803

REACTIONS (2)
  - Off label use [Unknown]
  - White blood cell count abnormal [Recovered/Resolved]
